FAERS Safety Report 4467803-9 (Version None)
Quarter: 2004Q4

REPORT INFORMATION
  Report Type: 
  Country: None (occurrence: None)
  Receive Date: 20041001
  Receipt Date: 20040921
  Transmission Date: 20050328
  Serious: Yes (Death)
  Sender: FDA-Public Use
  Company Number: 2004AC00366

PATIENT
  Age: 35 Year
  Sex: Male
  Weight: 75 kg

DRUGS (6)
  1. DIPRIVAN [Suspect]
     Indication: STATUS EPILEPTICUS
     Dosage: 4 MG/KG DAILY IV
     Route: 042
     Dates: start: 20040802, end: 20040804
  2. FERYTAIRE [Concomitant]
  3. MERENEM [Concomitant]
  4. PERISNITIS [Concomitant]
  5. ZOVIRAX [Concomitant]
  6. AMUKIN [Concomitant]

REACTIONS (4)
  - ARRHYTHMIA [None]
  - LACTIC ACIDOSIS [None]
  - RHABDOMYOLYSIS [None]
  - SHOCK [None]
